FAERS Safety Report 8392771-7 (Version None)
Quarter: 2012Q2

REPORT INFORMATION
  Report Type: 
  Country: None (occurrence: None)
  Receive Date: 20120529
  Receipt Date: 20110726
  Transmission Date: 20120825
  Serious: No
  Sender: FDA-Public Use
  Company Number: US-MYLANLABS-2011S1015602

PATIENT
  Age: 51 Year
  Sex: Female

DRUGS (4)
  1. ESTRADIOL [Suspect]
     Indication: HORMONE REPLACEMENT THERAPY
     Route: 048
     Dates: start: 20110301, end: 20110614
  2. ESTRADIOL [Suspect]
     Route: 048
     Dates: start: 20110615
  3. BUPROPION HYDROCHLORIDE [Suspect]
     Indication: CRYING
     Route: 048
     Dates: start: 20110723, end: 20110724
  4. SYNTHROID [Concomitant]
     Route: 048

REACTIONS (3)
  - RASH [None]
  - REACTION TO DRUG EXCIPIENTS [None]
  - PRURITUS [None]
